FAERS Safety Report 13456337 (Version 1)
Quarter: 2017Q2

REPORT INFORMATION
  Report Type: Spontaneous
  Country: FR (occurrence: FR)
  Receive Date: 20170419
  Receipt Date: 20170419
  Transmission Date: 20170830
  Serious: Yes (Hospitalization)
  Sender: FDA-Public Use
  Company Number: FR-PFIZER INC-2017160066

PATIENT
  Age: 41 Year
  Sex: Female

DRUGS (3)
  1. PREDNISOLONE. [Concomitant]
     Active Substance: PREDNISOLONE
     Indication: ARTHRALGIA
     Dosage: UNK
     Dates: start: 20170110, end: 20170222
  2. IBUPROFENE [Suspect]
     Active Substance: IBUPROFEN
     Indication: HEADACHE
     Dosage: 400 MG, 0 TO 2 TABLETS DAILY
     Route: 048
     Dates: start: 20170224, end: 20170303
  3. SALAZOPYRINE [Suspect]
     Active Substance: SULFASALAZINE
     Indication: ARTHRALGIA
     Dosage: 1 G, 2X/DAY
     Route: 048
     Dates: start: 20170110, end: 20170302

REACTIONS (3)
  - Neutropenia [Recovered/Resolved]
  - Hypertransaminasaemia [Recovering/Resolving]
  - Haematuria [Recovered/Resolved]

NARRATIVE: CASE EVENT DATE: 20170301
